FAERS Safety Report 4576757-6 (Version None)
Quarter: 2005Q1

REPORT INFORMATION
  Report Type: 
  Country: None (occurrence: None)
  Receive Date: 20050207
  Receipt Date: 20050118
  Transmission Date: 20050727
  Serious: Yes (Hospitalization, Other)
  Sender: FDA-Public Use
  Company Number: ATO-05-0014

PATIENT
  Age: 50 Year
  Sex: Female
  Weight: 83 kg

DRUGS (3)
  1. TRISENOX [Suspect]
     Indication: MULTIPLE MYELOMA
     Dosage: (0.25 MG/KG, BIW), IVI/AFTER 5 DOSES
     Route: 042
     Dates: start: 20050101, end: 20050106
  2. TRISENOX [Suspect]
     Indication: MULTIPLE MYELOMA
     Dosage: (0.25 MG/KG, BIW), IVI/AFTER 5 DOSES
     Route: 042
     Dates: start: 20041129
  3. VITAMIN C [Suspect]
     Dosage: 1 GRAM (BIW), IVI
     Route: 042
     Dates: start: 20041129, end: 20050106

REACTIONS (5)
  - CONVULSION [None]
  - PETIT MAL EPILEPSY [None]
  - PNEUMONIA [None]
  - PNEUMOTHORAX [None]
  - RENAL FAILURE ACUTE [None]
